FAERS Safety Report 4888295-1 (Version None)
Quarter: 2005Q4

REPORT INFORMATION
  Report Type: 
  Country: None (occurrence: None)
  Receive Date: 20051221
  Receipt Date: 20050616
  Transmission Date: 20060501
  Serious: No
  Sender: FDA-Public Use
  Company Number: US-YAMANOUCHI-YPA20050315

PATIENT
  Age: 58 Year
  Sex: Male
  Weight: 100.6985 kg

DRUGS (2)
  1. VESICARE [Suspect]
     Indication: URINE OUTPUT DECREASED
     Dosage: 5 MG, QD, PO
     Route: 048
     Dates: start: 20050501
  2. ENALAPRIL [Concomitant]

REACTIONS (1)
  - BACK PAIN [None]
